FAERS Safety Report 5473915-3 (Version None)
Quarter: 2007Q3

REPORT INFORMATION
  Report Type: 
  Country: None (occurrence: None)
  Receive Date: 20070831
  Receipt Date: 20070417
  Transmission Date: 20080115
  Serious: No
  Sender: FDA-Public Use
  Company Number: 236981

PATIENT
  Age: 88 Year
  Sex: Female

DRUGS (5)
  1. LUCENTIS [Suspect]
     Indication: MACULAR DEGENERATION
     Dates: start: 20070101
  2. DIGOXIN [Concomitant]
  3. ASPIRIN [Concomitant]
  4. OCUVITE(ASCORBIC ACID, BETA CAROTENE, COPPER NOS, LUTEIN, SELENIUM NOS [Concomitant]
  5. MECLIZINE HCL [Concomitant]

REACTIONS (1)
  - ALTERED VISUAL DEPTH PERCEPTION [None]
